FAERS Safety Report 5065829-8 (Version None)
Quarter: 2006Q3

REPORT INFORMATION
  Report Type: 
  Country: None (occurrence: None)
  Receive Date: 20060731
  Receipt Date: 20060712
  Transmission Date: 20061208
  Serious: Yes (Hospitalization, Other)
  Sender: FDA-Public Use
  Company Number: PHEH2006US08913

PATIENT
  Age: 41 Year
  Sex: Male
  Weight: 107.94 kg

DRUGS (7)
  1. GLEEVEC [Suspect]
     Indication: CHRONIC MYELOID LEUKAEMIA
     Dosage: 400 MG, QD
     Route: 048
     Dates: start: 20031217, end: 20040801
  2. GLEEVEC [Suspect]
     Dosage: UNK, NO TREATMENT
     Dates: start: 20040801, end: 20040801
  3. GLEEVEC [Suspect]
     Dosage: 400 MG, QD
     Route: 048
     Dates: start: 20040801, end: 20041001
  4. GLEEVEC [Suspect]
     Dosage: 800 MG, QD
     Route: 048
     Dates: start: 20041001
  5. ENTOCORT EC [Suspect]
     Dates: start: 20060622
  6. NEXIUM [Concomitant]
     Indication: GASTROOESOPHAGEAL REFLUX DISEASE
     Dosage: 40 MG, QD
     Route: 048
     Dates: start: 20060613
  7. MOTRIN [Concomitant]
     Dosage: 800 MG, PRN
     Route: 048

REACTIONS (20)
  - ABDOMINAL PAIN [None]
  - ANAEMIA [None]
  - ASCITES [None]
  - COUGH [None]
  - CROHN'S DISEASE [None]
  - DIARRHOEA [None]
  - DRUG INEFFECTIVE [None]
  - DYSPEPSIA [None]
  - ERYTHEMA [None]
  - GAIT DISTURBANCE [None]
  - HAEMATEMESIS [None]
  - HYPERHIDROSIS [None]
  - INFUSION SITE ERYTHEMA [None]
  - INFUSION SITE PAIN [None]
  - MUSCLE SPASMS [None]
  - MYALGIA [None]
  - NODULE ON EXTREMITY [None]
  - OEDEMA [None]
  - OESOPHAGEAL ULCER [None]
  - VOMITING [None]
